FAERS Safety Report 18423939 (Version 2)
Quarter: 2021Q2

REPORT INFORMATION
  Report Type: Report from Study
  Country: US (occurrence: US)
  Receive Date: 20201025
  Receipt Date: 20210526
  Transmission Date: 20210717
  Serious: Yes (Other)
  Sender: FDA-Public Use
  Company Number: NVSC2020US281755

PATIENT
  Sex: Male

DRUGS (2)
  1. PROMACTA [Suspect]
     Active Substance: ELTROMBOPAG OLAMINE
     Indication: PRODUCT USED FOR UNKNOWN INDICATION
     Dosage: UNK
     Route: 048
  2. PROMACTA [Suspect]
     Active Substance: ELTROMBOPAG OLAMINE
     Dosage: 25 MG
     Route: 048

REACTIONS (9)
  - Contusion [Unknown]
  - Lethargy [Unknown]
  - Haemorrhage [Unknown]
  - Abdominal discomfort [Unknown]
  - Nausea [Unknown]
  - Platelet count decreased [Unknown]
  - Fatigue [Unknown]
  - Feeling abnormal [Unknown]
  - Visual impairment [Unknown]
